FAERS Safety Report 6399997-2 (Version None)
Quarter: 2009Q4

REPORT INFORMATION
  Report Type: 
  Country: None (occurrence: None)
  Receive Date: 20091014
  Receipt Date: 20091006
  Transmission Date: 20100525
  Serious: Yes (Other)
  Sender: FDA-Public Use
  Company Number: US-ELI_LILLY_AND_COMPANY-US200909004781

PATIENT
  Sex: Male
  Weight: 131.5 kg

DRUGS (12)
  1. HUMALOG [Suspect]
     Dates: start: 20000101, end: 20000101
  2. HUMULIN N [Suspect]
     Dosage: UNK, UNK
     Dates: start: 20000101, end: 20000101
  3. HUMULIN R [Suspect]
     Dosage: UNK, UNK
     Dates: start: 20000101, end: 20000101
  4. HUMALOG MIX 75/25 [Suspect]
     Dosage: 60 U, UNK
     Dates: start: 20080101
  5. HUMALOG MIX 75/25 [Suspect]
     Dosage: 70 U, UNK
     Dates: start: 20080101
  6. HUMALOG MIX 75/25 [Suspect]
     Dosage: 45 U, EACH EVENING
     Dates: start: 20080101
  7. LANTUS [Concomitant]
     Dates: start: 20040101
  8. ISOSORBIDE DINITRATE [Concomitant]
  9. ISOSORBIDE MONONITRATE [Concomitant]
  10. BYETTA [Concomitant]
     Dosage: 5 MG, UNK
     Dates: start: 20070101, end: 20070101
  11. BYETTA [Concomitant]
     Dosage: 10 MG, UNK
     Dates: start: 20070101, end: 20070101
  12. VYTORIN [Concomitant]

REACTIONS (10)
  - BLOOD GLUCOSE INCREASED [None]
  - DRUG INEFFECTIVE [None]
  - GLYCOSYLATED HAEMOGLOBIN INCREASED [None]
  - HYPERSENSITIVITY [None]
  - INCORRECT DOSE ADMINISTERED [None]
  - INSULIN C-PEPTIDE INCREASED [None]
  - RASH [None]
  - RHABDOMYOLYSIS [None]
  - TOOTH ABSCESS [None]
  - WEIGHT INCREASED [None]
